FAERS Safety Report 10301944 (Version 1)
Quarter: 2014Q3

REPORT INFORMATION
  Report Type: Spontaneous
  Country: DE (occurrence: DE)
  Receive Date: 20140714
  Receipt Date: 20140714
  Transmission Date: 20150326
  Serious: Yes (Hospitalization)
  Sender: FDA-Public Use
  Company Number: DE-ASTRAZENECA-2014SE49410

PATIENT
  Age: 24366 Day
  Sex: Male

DRUGS (1)
  1. XYLOCAINE [Suspect]
     Active Substance: LIDOCAINE HYDROCHLORIDE
     Indication: ENDOTRACHEAL INTUBATION
     Dosage: 2 %
     Route: 065

REACTIONS (4)
  - Wrong technique in drug usage process [None]
  - Oedema mucosal [None]
  - Cough [Unknown]
  - Foreign body [None]

NARRATIVE: CASE EVENT DATE: 20140629
